FAERS Safety Report 9214672 (Version 2)
Quarter: 2013Q4

REPORT INFORMATION
  Report Type: Spontaneous
  Country: US (occurrence: US)
  Receive Date: 20130405
  Receipt Date: 20131119
  Transmission Date: 20140711
  Serious: Yes (Hospitalization, Other)
  Sender: FDA-Public Use
  Company Number: US-BAYER-2013-040698

PATIENT
  Age: 31 Year
  Sex: Female
  Weight: 77.1 kg

DRUGS (5)
  1. YAZ [Suspect]
     Dosage: UNK
     Dates: start: 2010, end: 2011
  2. YASMIN [Suspect]
     Dosage: UNK
     Dates: start: 2010, end: 2011
  3. OCELLA [Suspect]
     Dosage: UNK
     Dates: start: 2010, end: 2011
  4. ARMOUR THYROID [Concomitant]
     Dosage: UNK
     Dates: start: 20100628
  5. VICOPROFEN [Concomitant]
     Indication: PAIN
     Dosage: UNK
     Dates: start: 20100628

REACTIONS (9)
  - Injury [Recovered/Resolved]
  - Cholelithiasis [Recovered/Resolved]
  - Cholecystitis chronic [None]
  - Pain [None]
  - Abdominal pain [Recovered/Resolved]
  - General physical health deterioration [Recovered/Resolved]
  - Emotional distress [None]
  - Anxiety [None]
  - Pain [Recovered/Resolved]
